FAERS Safety Report 19904554 (Version 1)
Quarter: 2021Q4

REPORT INFORMATION
  Report Type: Spontaneous
  Country: DE (occurrence: DE)
  Receive Date: 20211001
  Receipt Date: 20211001
  Transmission Date: 20220303
  Serious: Yes (Other)
  Sender: FDA-Public Use
  Company Number: None

PATIENT
  Age: 49 Year
  Sex: Female
  Weight: 53 kg

DRUGS (4)
  1. TRAMADOL [Suspect]
     Active Substance: TRAMADOL
     Indication: Dysmenorrhoea
     Route: 048
     Dates: start: 20210901, end: 20210902
  2. TRAMADOL [Suspect]
     Active Substance: TRAMADOL
     Indication: Endometriosis
  3. URSODIOL [Concomitant]
     Active Substance: URSODIOL
     Indication: Metabolic disorder
     Dosage: HAS BEEN TAKING FOR 20 YEARS
  4. URSODIOL [Concomitant]
     Active Substance: URSODIOL
     Indication: Liver disorder

REACTIONS (17)
  - Depressed level of consciousness [Recovered/Resolved]
  - Tremor [Recovered/Resolved]
  - Vomiting [Recovered/Resolved]
  - Hypersensitivity [Recovered/Resolved]
  - Diarrhoea [Recovered/Resolved]
  - Arthralgia [Recovered/Resolved]
  - Nausea [Recovered/Resolved]
  - Pyrexia [Recovered/Resolved]
  - Asthenia [Recovered/Resolved]
  - Dizziness [Recovered/Resolved]
  - Hyperhidrosis [Recovered/Resolved]
  - Abdominal pain upper [Recovered/Resolved]
  - Chills [Recovered/Resolved]
  - General physical condition abnormal [Recovered/Resolved]
  - Swelling face [Recovered/Resolved]
  - Myalgia [Recovered/Resolved]
  - Palpitations [Recovered/Resolved]

NARRATIVE: CASE EVENT DATE: 20210902
